FAERS Safety Report 17880726 (Version 1)
Quarter: 2020Q2

REPORT INFORMATION
  Report Type: Report from Study
  Country: US (occurrence: US)
  Receive Date: 20200610
  Receipt Date: 20200610
  Transmission Date: 20200714
  Serious: Yes (Hospitalization)
  Sender: FDA-Public Use
  Company Number: US-SA-2020SA149166

PATIENT

DRUGS (2)
  1. SARILUMAB [Suspect]
     Active Substance: SARILUMAB
     Dosage: REGN88 OR PLACEBO, 200 MG OR 400 MG INTRAVENOUSLY (IV) SINGLE DOSE FOR 1 HOUR
     Route: 042
     Dates: start: 20200527, end: 20200527
  2. SARILUMAB [Suspect]
     Active Substance: SARILUMAB
     Indication: COVID-19
     Dosage: REGN88 OR PLACEBO, 200 MG OR 400 MG INTRAVENOUSLY (IV) SINGLE DOSE FOR 1 HOUR
     Route: 042
     Dates: start: 20200526, end: 20200526

REACTIONS (1)
  - Liver function test increased [Unknown]

NARRATIVE: CASE EVENT DATE: 20200531
